FAERS Safety Report 15603501 (Version 1)
Quarter: 2018Q4

REPORT INFORMATION
  Report Type: Spontaneous
  Country: EG (occurrence: EG)
  Receive Date: 20181109
  Receipt Date: 20181109
  Transmission Date: 20190205
  Serious: Yes (Other)
  Sender: FDA-Public Use
  Company Number: EG-009507513-1811EGY003276

PATIENT
  Age: 56 Year
  Sex: Male

DRUGS (6)
  1. RIBAVIRIN. [Suspect]
     Active Substance: RIBAVIRIN
     Indication: CHRONIC HEPATITIS C
     Dosage: UNK
     Dates: start: 201602, end: 201608
  2. RIBAVIRIN. [Suspect]
     Active Substance: RIBAVIRIN
     Dosage: UNK
     Dates: start: 201612, end: 201706
  3. DACLATASVIR. [Suspect]
     Active Substance: DACLATASVIR
     Indication: CHRONIC HEPATITIS C
     Dosage: 60 MILLIGRAM
     Dates: start: 201602, end: 201708
  4. SOFOSBUVIR [Suspect]
     Active Substance: SOFOSBUVIR
     Indication: CHRONIC HEPATITIS C
     Dosage: 400 UNK
     Route: 048
     Dates: start: 201602, end: 201608
  5. SOFOSBUVIR [Suspect]
     Active Substance: SOFOSBUVIR
     Dosage: 400 MILLIGRAM
     Dates: start: 201612, end: 201706
  6. DACLATASVIR. [Suspect]
     Active Substance: DACLATASVIR
     Dosage: 60 MILLIGRAM
     Dates: start: 201612, end: 201706

REACTIONS (2)
  - Hepatocellular carcinoma [Unknown]
  - Hepatitis C [Unknown]
